FAERS Safety Report 5331868-2 (Version None)
Quarter: 2007Q2

REPORT INFORMATION
  Report Type: 
  Country: None (occurrence: None)
  Receive Date: 20070521
  Receipt Date: 20070507
  Transmission Date: 20071010
  Serious: Yes (Hospitalization)
  Sender: FDA-Public Use
  Company Number: 2007-158331-NL

PATIENT
  Age: 52 Year
  Sex: Male
  Weight: 109 kg

DRUGS (3)
  1. REMERON [Suspect]
     Indication: DEPRESSION
     Dosage: 30 MG DAILY ORAL
     Route: 048
     Dates: start: 20061220, end: 20061224
  2. PAXIL [Suspect]
     Indication: DEPRESSION
     Dosage: DF ORAL
     Route: 048
  3. DIAZEPAM [Suspect]
     Indication: DEPRESSION
     Dosage: DF ORAL
     Route: 048

REACTIONS (6)
  - ABDOMINAL PAIN [None]
  - BACK PAIN [None]
  - GAIT DISTURBANCE [None]
  - HALLUCINATION [None]
  - HEADACHE [None]
  - HYPERHIDROSIS [None]
